FAERS Safety Report 7531724-5 (Version None)
Quarter: 2011Q2

REPORT INFORMATION
  Report Type: 
  Country: None (occurrence: None)
  Receive Date: 20110608
  Receipt Date: 20110602
  Transmission Date: 20111010
  Serious: Yes (Other)
  Sender: FDA-Public Use
  Company Number: AU-ASTELLAS-2011EU003374

PATIENT
  Sex: Female

DRUGS (2)
  1. VESICARE [Suspect]
     Dosage: 5 MG, UNKNOWN/D
     Route: 065
     Dates: start: 20070101
  2. AVAPRO [Concomitant]
     Dosage: UNK
     Route: 065

REACTIONS (1)
  - RENAL IMPAIRMENT [None]
